FAERS Safety Report 5970875-3 (Version None)
Quarter: 2008Q4

REPORT INFORMATION
  Report Type: 
  Country: None (occurrence: None)
  Receive Date: 20081128
  Receipt Date: 20081115
  Transmission Date: 20090506
  Serious: Yes (Other)
  Sender: FDA-Public Use
  Company Number: PHHY2008FR28726

PATIENT
  Sex: Female

DRUGS (1)
  1. GYNERGENE CAFEINE [Suspect]
     Indication: MIGRAINE
     Dosage: 2 TABS ONCE
     Dates: start: 20081115

REACTIONS (3)
  - DYSPNOEA [None]
  - NAUSEA [None]
  - PARAESTHESIA [None]
